FAERS Safety Report 21142335 (Version 2)
Quarter: 2022Q3

REPORT INFORMATION
  Report Type: Spontaneous
  Country: IT (occurrence: IT)
  Receive Date: 20220728
  Receipt Date: 20220804
  Transmission Date: 20221027
  Serious: Yes (Other)
  Sender: FDA-Public Use
  Company Number: IT-002147023-NVSC2022IT162676

PATIENT
  Age: 32 Year
  Sex: Female

DRUGS (3)
  1. HUMIRA [Suspect]
     Active Substance: ADALIMUMAB
     Indication: Iridocyclitis
     Route: 058
     Dates: start: 202007
  2. PREDNISONE [Suspect]
     Active Substance: PREDNISONE
     Indication: Iridocyclitis
     Dosage: 12.5 MG, QD (PREDNISONE 12.5 MG/DAY WITH PROGRESSIVE DECREASE OF THE DOSAGE UP TO 6.25)
     Route: 065
  3. PREDNISONE [Suspect]
     Active Substance: PREDNISONE
     Route: 065
     Dates: start: 202207

REACTIONS (16)
  - Temporomandibular joint syndrome [Unknown]
  - Joint swelling [Unknown]
  - Peripheral spondyloarthritis [Unknown]
  - Sacroiliitis [Unknown]
  - Axial spondyloarthritis [Unknown]
  - Arthritis [Unknown]
  - Arthralgia [Unknown]
  - Back pain [Unknown]
  - Neck pain [Unknown]
  - Spinal pain [Unknown]
  - C-reactive protein abnormal [Unknown]
  - Adnexa uteri cyst [Unknown]
  - Red blood cell sedimentation rate abnormal [Unknown]
  - Mental disorder [Unknown]
  - Sacroiliac joint dysfunction [Unknown]
  - Pain [Unknown]
